FAERS Safety Report 6973006-6 (Version None)
Quarter: 2010Q3

REPORT INFORMATION
  Report Type: 
  Country: None (occurrence: None)
  Receive Date: 20100909
  Receipt Date: 20100906
  Transmission Date: 20110219
  Serious: Yes (Hospitalization)
  Sender: FDA-Public Use
  Company Number: DE-SANOFI-AVENTIS-2010SA053444

PATIENT
  Age: 51 Year
  Sex: Male

DRUGS (5)
  1. DOCETAXEL [Suspect]
     Route: 041
     Dates: start: 20090815, end: 20090815
  2. DOCETAXEL [Suspect]
     Route: 041
     Dates: start: 20100106, end: 20100106
  3. CISPLATIN [Suspect]
     Route: 041
     Dates: start: 20090815, end: 20090815
  4. CISPLATIN [Suspect]
     Route: 041
     Dates: start: 20100106, end: 20100106
  5. XELODA [Suspect]
     Route: 048
     Dates: start: 20090815, end: 20100115

REACTIONS (1)
  - PANCREATITIS ACUTE [None]
